FAERS Safety Report 4429962-3 (Version None)
Quarter: 2004Q3

REPORT INFORMATION
  Report Type: 
  Country: None (occurrence: None)
  Receive Date: 20040817
  Receipt Date: 20040810
  Transmission Date: 20050211
  Serious: Yes (Death)
  Sender: FDA-Public Use
  Company Number: 2004UW16878

PATIENT
  Age: 24 Year
  Sex: Female

DRUGS (8)
  1. SEROQUEL [Suspect]
     Indication: DEPRESSION
     Dosage: 25 MG QD PO
     Route: 048
     Dates: end: 20040704
  2. LEXAPRO [Suspect]
     Indication: ANXIETY
     Dosage: 30 MG QD PO
     Route: 048
     Dates: start: 20040601, end: 20040704
  3. LEXAPRO [Suspect]
     Indication: DEPRESSION
     Dosage: 30 MG QD PO
     Route: 048
     Dates: start: 20040601, end: 20040704
  4. LEXAPRO [Suspect]
     Indication: ANXIETY
     Dosage: 10 MG QD PO
     Route: 048
     Dates: start: 20040401
  5. LEXAPRO [Suspect]
     Indication: DEPRESSION
     Dosage: 10 MG QD PO
     Route: 048
     Dates: start: 20040401
  6. LEXAPRO [Suspect]
     Indication: ANXIETY
     Dosage: 20 MG QD PO
     Route: 048
  7. LEXAPRO [Suspect]
     Indication: DEPRESSION
     Dosage: 20 MG QD PO
     Route: 048
  8. NEURONTIN [Concomitant]

REACTIONS (5)
  - ALCOHOL USE [None]
  - CARDIAC ARREST [None]
  - COMA [None]
  - RESPIRATORY ARREST [None]
  - SUDDEN DEATH [None]
